FAERS Safety Report 8157522-X (Version None)
Quarter: 2012Q1

REPORT INFORMATION
  Report Type: 
  Country: None (occurrence: None)
  Receive Date: 20120222
  Receipt Date: 20120215
  Transmission Date: 20120608
  Serious: Yes (Hospitalization)
  Sender: FDA-Public Use
  Company Number: DK-PFIZER INC-2011287362

PATIENT
  Age: 65 Year
  Sex: Male
  Weight: 74 kg

DRUGS (13)
  1. VINCRISTINE [Suspect]
     Dosage: 11.8 MG, UNK
     Route: 042
     Dates: start: 20101216
  2. OXYCODONE [Concomitant]
     Indication: ABDOMINAL PAIN UPPER
     Dosage: 5 MG, UNK
     Route: 048
     Dates: start: 20100903
  3. RITUXIMAB [Suspect]
     Indication: DIFFUSE LARGE B-CELL LYMPHOMA
     Dosage: 700 MG, UNK
     Route: 042
     Dates: start: 20100924
  4. VINBLASTINE SULFATE [Suspect]
     Indication: DIFFUSE LARGE B-CELL LYMPHOMA
     Dosage: UNK
     Dates: start: 20101214
  5. NEUPOGEN [Suspect]
     Indication: DIFFUSE LARGE B-CELL LYMPHOMA
     Dosage: 6 MG, UNK
     Route: 058
     Dates: start: 20100925
  6. PREDNISONE TAB [Suspect]
     Indication: DIFFUSE LARGE B-CELL LYMPHOMA
     Dosage: 100 MG, UNK
     Route: 048
     Dates: start: 20100924
  7. MORPHINE [Concomitant]
     Indication: ABDOMINAL PAIN UPPER
     Dosage: 20 MG, BID
     Route: 048
     Dates: start: 20100901
  8. DOXORUBICIN HCL [Suspect]
     Dosage: 97.5 MG, UNK
     Route: 042
     Dates: start: 20101216
  9. CYCLOPHOSPHAMIDE [Suspect]
     Indication: DIFFUSE LARGE B-CELL LYMPHOMA
     Dosage: 1463 MG, UNK
     Route: 042
     Dates: start: 20100924
  10. PANTOPRAZOLE [Concomitant]
     Dosage: 40 MG, QD
     Route: 048
     Dates: start: 20100909
  11. METOPROLOL [Concomitant]
     Indication: ATRIAL FIBRILLATION
     Dosage: 100 MG, UNK
     Route: 048
     Dates: start: 20101209, end: 20110102
  12. VINCRISTINE [Suspect]
     Indication: DIFFUSE LARGE B-CELL LYMPHOMA
     Dosage: 2 MG, UNK
     Route: 042
     Dates: start: 20100924, end: 20101201
  13. DOXORUBICIN HCL [Suspect]
     Indication: DIFFUSE LARGE B-CELL LYMPHOMA
     Dosage: 98.5 MG, UNK
     Route: 042
     Dates: start: 20100924

REACTIONS (2)
  - DEEP VEIN THROMBOSIS [None]
  - LUNG INFECTION [None]
